FAERS Safety Report 4854997-6 (Version None)
Quarter: 2005Q4

REPORT INFORMATION
  Report Type: 
  Country: None (occurrence: None)
  Receive Date: 20051214
  Receipt Date: 20051202
  Transmission Date: 20060501
  Serious: Yes (Life-Threatening, Hospitalization)
  Sender: FDA-Public Use
  Company Number: 2005RR-01299

PATIENT
  Age: 79 Year
  Weight: 75 kg

DRUGS (7)
  1. RAMIPRIL [Suspect]
  2. RANITIDINE [Suspect]
     Dosage: 150 MG, BID
  3. FUROSEMIDE [Suspect]
     Dosage: 40 MG QD
  4. DIGOXIN [Concomitant]
  5. DISPERSIBLE ASPIRIN TABLETS BP [Concomitant]
  6. FENTOFIBRATE [Concomitant]
  7. HYPROMELLOSE [Concomitant]

REACTIONS (4)
  - ABDOMINAL PAIN [None]
  - DIARRHOEA [None]
  - PANCREATITIS HAEMORRHAGIC [None]
  - VOMITING [None]
